FAERS Safety Report 11913619 (Version 3)
Quarter: 2016Q1

REPORT INFORMATION
  Report Type: Spontaneous
  Country: US (occurrence: US)
  Receive Date: 20160113
  Receipt Date: 20160211
  Transmission Date: 20160526
  Serious: No
  Sender: FDA-Public Use
  Company Number: US-PFIZER INC-2015469664

PATIENT
  Age: 59 Year
  Sex: Female

DRUGS (1)
  1. ADVIL [Suspect]
     Active Substance: IBUPROFEN
     Indication: ARTHRITIS
     Dosage: 200 MG, 2X/DAY
     Route: 048

REACTIONS (3)
  - Poor quality drug administered [Unknown]
  - Hypoaesthesia oral [Unknown]
  - Product physical issue [Unknown]
